FAERS Safety Report 11828742 (Version 1)
Quarter: 2015Q4

REPORT INFORMATION
  Report Type: Spontaneous
  Country: US (occurrence: US)
  Receive Date: 20151211
  Receipt Date: 20151211
  Transmission Date: 20160305
  Serious: Yes (Hospitalization)
  Sender: FDA-Public Use
  Company Number: US-BRISTOL-MYERS SQUIBB COMPANY-BMS-2015-084744

PATIENT
  Sex: Female

DRUGS (5)
  1. FLOLAN [Suspect]
     Active Substance: EPOPROSTENOL SODIUM
     Indication: PULMONARY ARTERIAL HYPERTENSION
     Dosage: 24 OTHER, UNK
     Route: 065
     Dates: start: 20130403
  2. COUMADIN [Suspect]
     Active Substance: WARFARIN SODIUM
     Indication: PRODUCT USED FOR UNKNOWN INDICATION
     Route: 065
  3. SILDENAFIL. [Concomitant]
     Active Substance: SILDENAFIL
     Indication: PRODUCT USED FOR UNKNOWN INDICATION
     Route: 065
  4. ELIQUIS [Suspect]
     Active Substance: APIXABAN
     Indication: PRODUCT USED FOR UNKNOWN INDICATION
     Route: 065
  5. REVATIO [Concomitant]
     Active Substance: SILDENAFIL CITRATE
     Indication: PRODUCT USED FOR UNKNOWN INDICATION
     Route: 065

REACTIONS (22)
  - Erythema [Unknown]
  - Headache [Unknown]
  - Memory impairment [Unknown]
  - Device issue [Recovered/Resolved]
  - Nausea [Unknown]
  - Skin irritation [Recovering/Resolving]
  - Abdominal discomfort [Unknown]
  - Weight decreased [Unknown]
  - Dry skin [Unknown]
  - Feeling hot [Unknown]
  - Abdominal pain [Unknown]
  - Application site erythema [Unknown]
  - Application site irritation [Unknown]
  - Medical device complication [Unknown]
  - Pruritus [Unknown]
  - Device alarm issue [Unknown]
  - Pain in jaw [Unknown]
  - Catheter site pruritus [Unknown]
  - Device leakage [Unknown]
  - Myalgia [Unknown]
  - Flushing [Unknown]
  - Localised infection [Unknown]

NARRATIVE: CASE EVENT DATE: 2013
